FAERS Safety Report 19155893 (Version 1)
Quarter: 2021Q2

REPORT INFORMATION
  Report Type: Other
  Country: CN (occurrence: CN)
  Receive Date: 20210420
  Receipt Date: 20210420
  Transmission Date: 20210717
  Serious: Yes (Other)
  Sender: FDA-Public Use
  Company Number: CN-ROCHE-2806799

PATIENT

DRUGS (2)
  1. BEVACIZUMAB. [Suspect]
     Active Substance: BEVACIZUMAB
     Indication: GLIOBLASTOMA
     Route: 042
  2. TEMOZOLOMIDE. [Suspect]
     Active Substance: TEMOZOLOMIDE
     Indication: GLIOBLASTOMA
     Route: 042

REACTIONS (9)
  - Vomiting [Unknown]
  - Pyrexia [Unknown]
  - Blood pressure abnormal [Unknown]
  - Nausea [Unknown]
  - Urine analysis abnormal [Unknown]
  - Pain [Unknown]
  - Constipation [Unknown]
  - Altered state of consciousness [Unknown]
  - Diarrhoea [Unknown]
